FAERS Safety Report 17437358 (Version 1)
Quarter: 2020Q1

REPORT INFORMATION
  Report Type: Spontaneous
  Country: CN (occurrence: CN)
  Receive Date: 20200219
  Receipt Date: 20200219
  Transmission Date: 20200409
  Serious: Yes (Other)
  Sender: FDA-Public Use
  Company Number: CN-BAYER-2020-027943

PATIENT
  Age: 91 Year
  Sex: Male
  Weight: 60 kg

DRUGS (3)
  1. PIPERACILLIN TAZOBACTAM PA [Concomitant]
     Active Substance: PIPERACILLIN SODIUM\TAZOBACTAM SODIUM
  2. AVELOX [Suspect]
     Active Substance: MOXIFLOXACIN HYDROCHLORIDE
     Indication: ANTI-INFECTIVE THERAPY
     Dosage: 400 MG, QD
     Route: 041
     Dates: start: 20191204, end: 20191206
  3. LANSOPRAZOLE. [Concomitant]
     Active Substance: LANSOPRAZOLE

REACTIONS (5)
  - Hallucination [Recovered/Resolved]
  - Dysphoria [Recovered/Resolved]
  - Abnormal behaviour [Recovered/Resolved]
  - Communication disorder [Recovered/Resolved]
  - Soliloquy [Recovered/Resolved]

NARRATIVE: CASE EVENT DATE: 20191205
